FAERS Safety Report 4431289-0 (Version None)
Quarter: 2004Q3

REPORT INFORMATION
  Report Type: 
  Country: None (occurrence: None)
  Receive Date: 20040819
  Receipt Date: 20040812
  Transmission Date: 20050211
  Serious: Yes (Other)
  Sender: FDA-Public Use
  Company Number: 04-08-1186

PATIENT
  Age: 58 Year
  Sex: Male

DRUGS (6)
  1. ALBUTEROL [Suspect]
     Indication: ASTHMA
     Dosage: 100MCG INHALATION
     Route: 055
     Dates: start: 20040618, end: 20040722
  2. WARFARIN SODIUM [Concomitant]
  3. VERAPAMIL [Concomitant]
  4. FLUVASTATIN [Concomitant]
  5. OXYTETRACYCLINE [Concomitant]
  6. DIGOXIN [Concomitant]

REACTIONS (1)
  - ARTHRALGIA [None]
